FAERS Safety Report 21898021 (Version 1)
Quarter: 2023Q1

REPORT INFORMATION
  Report Type: Spontaneous
  Country: US (occurrence: US)
  Receive Date: 20230123
  Receipt Date: 20230123
  Transmission Date: 20230418
  Serious: No
  Sender: FDA-Public Use
  Company Number: US-NOVOPROD-1003529

PATIENT
  Sex: Male

DRUGS (2)
  1. SEMAGLUTIDE [Suspect]
     Active Substance: SEMAGLUTIDE
     Indication: Cardiac disorder
     Dosage: 20 IU, QW
     Route: 058
     Dates: start: 202211
  2. SEMAGLUTIDE [Suspect]
     Active Substance: SEMAGLUTIDE
     Indication: Overweight
     Dosage: 10 IU, QW
     Route: 058
     Dates: start: 20221008

REACTIONS (7)
  - Unevaluable event [Not Recovered/Not Resolved]
  - Weight loss poor [Unknown]
  - Product communication issue [Unknown]
  - Wrong technique in product usage process [Unknown]
  - Wrong technique in product usage process [Unknown]
  - Physical product label issue [Unknown]
  - Suspected counterfeit product [Unknown]
